FAERS Safety Report 23503913 (Version 2)
Quarter: 2024Q2

REPORT INFORMATION
  Report Type: Spontaneous
  Country: US (occurrence: US)
  Receive Date: 20240209
  Receipt Date: 20240418
  Transmission Date: 20240716
  Serious: No
  Sender: FDA-Public Use
  Company Number: US-BIOGEN-2023BI01229167

PATIENT
  Sex: Female

DRUGS (7)
  1. VUMERITY [Suspect]
     Active Substance: DIROXIMEL FUMARATE
     Indication: Relapsing-remitting multiple sclerosis
     Route: 050
     Dates: start: 20230901, end: 20230907
  2. VUMERITY [Suspect]
     Active Substance: DIROXIMEL FUMARATE
     Dosage: TAKE 2 CAPSULES (462MG) BY MOUTH TWICE DAILY.
     Route: 050
     Dates: start: 20230908
  3. AMPYRA [Suspect]
     Active Substance: DALFAMPRIDINE
     Indication: Gait disturbance
     Route: 050
  4. ESTRADIOL [Suspect]
     Active Substance: ESTRADIOL
     Indication: Breast cancer
     Route: 050
  5. ANASTROZOLE [Suspect]
     Active Substance: ANASTROZOLE
     Indication: Breast cancer
     Route: 050
  6. SYNTHROID [Concomitant]
     Active Substance: LEVOTHYROXINE SODIUM
     Route: 050
  7. METOPROLOL TARTRATE [Concomitant]
     Active Substance: METOPROLOL TARTRATE
     Route: 050

REACTIONS (8)
  - Muscle spasms [Not Recovered/Not Resolved]
  - Arthritis [Unknown]
  - Limb discomfort [Unknown]
  - Hypoaesthesia [Unknown]
  - Gastrointestinal disorder [Recovered/Resolved]
  - Diarrhoea [Unknown]
  - Hot flush [Unknown]
  - Nausea [Unknown]
